FAERS Safety Report 4996448-7 (Version None)
Quarter: 2006Q2

REPORT INFORMATION
  Report Type: 
  Country: None (occurrence: None)
  Receive Date: 20060509
  Receipt Date: 20060427
  Transmission Date: 20061013
  Serious: Yes (Death, Hospitalization)
  Sender: FDA-Public Use
  Company Number: PHBS2006US06338

PATIENT
  Age: 63 Year
  Sex: Female

DRUGS (8)
  1. CYCLOSPORINE [Suspect]
     Indication: LIVER TRANSPLANT
     Dosage: UNK, UNK
     Route: 065
     Dates: start: 19950101
  2. AZATHIOPRINE [Suspect]
     Indication: LIVER TRANSPLANT
     Dosage: 75 MG/D
  3. PREDNISONE TAB [Suspect]
     Indication: LIVER TRANSPLANT
  4. FUROSEMIDE [Concomitant]
  5. LEVOTHYROXINE SODIUM [Concomitant]
  6. GLYBURIDE [Concomitant]
  7. VITAMINS [Concomitant]
  8. RANITIDINE [Concomitant]

REACTIONS (13)
  - ABDOMINAL WALL DISORDER [None]
  - ANTI-PLATELET ANTIBODY POSITIVE [None]
  - BLOOD CREATININE INCREASED [None]
  - CLOSTRIDIAL INFECTION [None]
  - FIBROSIS [None]
  - IDIOPATHIC THROMBOCYTOPENIC PURPURA [None]
  - LIVER FUNCTION TEST ABNORMAL [None]
  - MARROW HYPERPLASIA [None]
  - MEGAKARYOCYTES INCREASED [None]
  - PLATELET COUNT DECREASED [None]
  - PORTAL VENOUS GAS [None]
  - RENAL FAILURE [None]
  - SEPSIS [None]
